FAERS Safety Report 11639846 (Version 5)
Quarter: 2016Q1

REPORT INFORMATION
  Report Type: Report from Study
  Country: US (occurrence: US)
  Receive Date: 20151019
  Receipt Date: 20160302
  Transmission Date: 20160525
  Serious: Yes (Hospitalization)
  Sender: FDA-Public Use
  Company Number: US-EISAI MEDICAL RESEARCH-EC-2015-010809

PATIENT
  Age: 64 Year
  Sex: Male
  Weight: 96.2 kg

DRUGS (21)
  1. LIDOCAINE. [Concomitant]
     Active Substance: LIDOCAINE
  2. FAMOTIDINE. [Concomitant]
     Active Substance: FAMOTIDINE
  3. PROMETHAZINE-CODEINE SYRUP [Concomitant]
  4. METAXALONE. [Concomitant]
     Active Substance: METAXALONE
  5. TOPROL XL [Concomitant]
     Active Substance: METOPROLOL SUCCINATE
  6. SYNTHROID [Concomitant]
     Active Substance: LEVOTHYROXINE SODIUM
  7. HYDROCODONE BITARTRATE AND ACETAMINOPHEN [Concomitant]
     Active Substance: ACETAMINOPHEN\HYDROCODONE BITARTRATE
  8. LENVIMA [Suspect]
     Active Substance: LENVATINIB
     Indication: THYROID CANCER
     Route: 048
     Dates: start: 20150914, end: 20151026
  9. NEXIUM [Concomitant]
     Active Substance: ESOMEPRAZOLE MAGNESIUM
  10. PRAVASTATIN [Concomitant]
     Active Substance: PRAVASTATIN\PRAVASTATIN SODIUM
  11. VIAGRA [Concomitant]
     Active Substance: SILDENAFIL CITRATE
  12. AVAPRO [Suspect]
     Active Substance: IRBESARTAN
     Indication: PRODUCT USED FOR UNKNOWN INDICATION
     Dosage: DOSE UNKNOWN
     Route: 048
  13. ZOFRAN [Concomitant]
     Active Substance: ONDANSETRON HYDROCHLORIDE
  14. IRBESARTAN. [Concomitant]
     Active Substance: IRBESARTAN
  15. VENTOLIN [Concomitant]
     Active Substance: ALBUTEROL SULFATE
  16. AMOXICILLIN. [Concomitant]
     Active Substance: AMOXICILLIN
  17. FLOMAX [Concomitant]
     Active Substance: TAMSULOSIN HYDROCHLORIDE
  18. LENVIMA [Suspect]
     Active Substance: LENVATINIB
     Route: 048
     Dates: start: 2015
  19. PREDNISONE. [Concomitant]
     Active Substance: PREDNISONE
  20. IMODIUM [Concomitant]
     Active Substance: LOPERAMIDE HYDROCHLORIDE
  21. LABETALOL [Concomitant]
     Active Substance: LABETALOL\LABETALOL HYDROCHLORIDE

REACTIONS (14)
  - Diarrhoea [Unknown]
  - Fatigue [Unknown]
  - Central nervous system lesion [Unknown]
  - Tongue blistering [Unknown]
  - Tongue discolouration [Unknown]
  - Dysphonia [Unknown]
  - Alopecia [Unknown]
  - Lip swelling [Recovered/Resolved]
  - Hypertension [Not Recovered/Not Resolved]
  - Hypoaesthesia oral [Unknown]
  - Nausea [Unknown]
  - Temperature intolerance [Unknown]
  - Dizziness [Recovered/Resolved]
  - Dry skin [Unknown]

NARRATIVE: CASE EVENT DATE: 2015
